FAERS Safety Report 11938952 (Version 1)
Quarter: 2016Q1

REPORT INFORMATION
  Report Type: Spontaneous
  Country: US (occurrence: US)
  Receive Date: 20160122
  Receipt Date: 20160122
  Transmission Date: 20160526
  Serious: No
  Sender: FDA-Public Use
  Company Number: US-HERITAGE PHARMACEUTICALS-2015HTG00075

PATIENT
  Age: 40 Year
  Sex: Female
  Weight: 61.22 kg

DRUGS (9)
  1. NYSTATIN. [Suspect]
     Active Substance: NYSTATIN
     Indication: CANDIDA INFECTION
     Dosage: 2 TABLETS, 3X/DAY
     Route: 048
     Dates: start: 20151122
  2. HYDROXYZINE [Concomitant]
     Active Substance: HYDROXYZINE\HYDROXYZINE HYDROCHLORIDE
     Dosage: 25 MG, 1X/DAY
  3. MULTITHERA 3 [Concomitant]
     Dosage: UNK, 1X/DAY
  4. MINIVELLE PATCH [Concomitant]
     Dosage: 1 DOSAGE UNITS, 2X/WEEK
     Route: 061
  5. S ACETYL GLUTATHIONE [Concomitant]
     Dosage: 100 MG, 1X/DAY
  6. VITAMIN D3 [Concomitant]
     Active Substance: CHOLECALCIFEROL
     Dosage: 6000 IU, 1X/DAY
  7. URIBEL [Concomitant]
     Active Substance: HYOSCYAMINE SULFATE\METHENAMINE\METHYLENE BLUE\PHENYL SALICYLATE\SODIUM PHOSPHATE, MONOBASIC, MONOHYDRATE
     Dosage: 118 MG, UP TO 4X/DAY
  8. PROGESTERONE. [Concomitant]
     Active Substance: PROGESTERONE
     Dosage: 50 MG, 1X/DAY
  9. XYMOZYME [Concomitant]
     Dosage: UNK, 1X/DAY

REACTIONS (5)
  - Headache [Not Recovered/Not Resolved]
  - Nausea [Not Recovered/Not Resolved]
  - Abdominal discomfort [Not Recovered/Not Resolved]
  - Myalgia [Not Recovered/Not Resolved]
  - Abdominal pain upper [Not Recovered/Not Resolved]

NARRATIVE: CASE EVENT DATE: 20151128
